FAERS Safety Report 11843826 (Version 1)
Quarter: 2015Q4

REPORT INFORMATION
  Report Type: Report from Study
  Country: US (occurrence: US)
  Receive Date: 20151217
  Receipt Date: 20151217
  Transmission Date: 20160305
  Serious: Yes (Other)
  Sender: FDA-Public Use
  Company Number: US-GILEAD-2015-0187920

PATIENT
  Age: 66 Year
  Sex: Male

DRUGS (1)
  1. AMBRISENTAN [Suspect]
     Active Substance: AMBRISENTAN
     Indication: PRODUCT USED FOR UNKNOWN INDICATION
     Dosage: 5 MG, QD
     Route: 065
     Dates: start: 20110914

REACTIONS (16)
  - Irritable bowel syndrome [Unknown]
  - Ammonia abnormal [Unknown]
  - Brain hypoxia [Unknown]
  - Lower limb fracture [Unknown]
  - Chronic obstructive pulmonary disease [Unknown]
  - Decreased appetite [Unknown]
  - Ligament rupture [Unknown]
  - Extrasystoles [Unknown]
  - Cardiomegaly [Unknown]
  - Insomnia [Unknown]
  - Impatience [Unknown]
  - Depression [Unknown]
  - Anger [Unknown]
  - Condition aggravated [Unknown]
  - Anxiety [Unknown]
  - Weight decreased [Unknown]
